FAERS Safety Report 13602219 (Version 1)
Quarter: 2017Q2

REPORT INFORMATION
  Report Type: Report from Study
  Country: NL (occurrence: NL)
  Receive Date: 20170601
  Receipt Date: 20170601
  Transmission Date: 20170830
  Serious: Yes (Hospitalization, Other)
  Sender: FDA-Public Use
  Company Number: NL-AMGEN-NLDSL2017082968

PATIENT
  Age: 64 Year
  Sex: Female

DRUGS (8)
  1. XGEVA [Suspect]
     Active Substance: DENOSUMAB
     Indication: PROPHYLAXIS
     Dosage: 120 MG, Q4WK
     Route: 058
  2. XGEVA [Suspect]
     Active Substance: DENOSUMAB
     Dosage: UNK
     Route: 058
  3. PANTOPRAZOL [Concomitant]
     Active Substance: PANTOPRAZOLE SODIUM
     Dosage: 40 MG, QD
  4. OXAZEPAM. [Concomitant]
     Active Substance: OXAZEPAM
     Dosage: 10 MG, QD
  5. MEGESTROL ACETATE. [Concomitant]
     Active Substance: MEGESTROL ACETATE
     Dosage: 160 MG, QD
  6. FENTANYL. [Concomitant]
     Active Substance: FENTANYL
     Dosage: 37 MUG, UNK
  7. NIFEDIPINE. [Concomitant]
     Active Substance: NIFEDIPINE
     Dosage: 30 MG, QD
  8. ABSTRAL [Concomitant]
     Active Substance: FENTANYL CITRATE
     Dosage: 200 UNK, QD

REACTIONS (4)
  - Ascites [Unknown]
  - Fluid intake reduced [Not Recovered/Not Resolved]
  - Decreased appetite [Not Recovered/Not Resolved]
  - Hepatic neoplasm [Not Recovered/Not Resolved]

NARRATIVE: CASE EVENT DATE: 20170515
